FAERS Safety Report 10058470 (Version 1)
Quarter: 2014Q2

REPORT INFORMATION
  Report Type: Spontaneous
  Country: US (occurrence: US)
  Receive Date: 20140404
  Receipt Date: 20140404
  Transmission Date: 20141212
  Serious: No
  Sender: FDA-Public Use
  Company Number: US-009507513-1403USA011408

PATIENT
  Sex: Female

DRUGS (1)
  1. NUVARING [Suspect]
     Dosage: 1 RING
     Route: 067

REACTIONS (3)
  - Incorrect drug administration duration [Unknown]
  - Device expulsion [Unknown]
  - No adverse event [Unknown]
